FAERS Safety Report 26068006 (Version 1)
Quarter: 2025Q4

REPORT INFORMATION
  Report Type: Report from Study
  Country: IL (occurrence: IL)
  Receive Date: 20251120
  Receipt Date: 20251120
  Transmission Date: 20260118
  Serious: Yes (Hospitalization)
  Sender: ABBVIE
  Company Number: IL-ABBVIE-6480580

PATIENT
  Age: 40 Year
  Sex: Male

DRUGS (3)
  1. SKYRIZI [Suspect]
     Active Substance: RISANKIZUMAB-RZAA
     Indication: Crohn^s disease
     Dosage: FORM STRENGTH: SKYRIZI 360MG OBI
     Route: 058
     Dates: start: 20250617
  2. SKYRIZI [Suspect]
     Active Substance: RISANKIZUMAB-RZAA
     Dosage: FORM STRENGTH: SKYRIZI 360MG OBI
     Route: 058
     Dates: start: 20250601
  3. SKYRIZI [Suspect]
     Active Substance: RISANKIZUMAB-RZAA
     Dosage: FORM STRENGTH: SKYRIZI 360MG OBI
     Route: 058
     Dates: start: 20250922

REACTIONS (5)
  - Abdominal discomfort [Recovering/Resolving]
  - Product administration error [Unknown]
  - Dehydration [Recovering/Resolving]
  - Hypophagia [Unknown]
  - Inflammatory marker decreased [Unknown]

NARRATIVE: CASE EVENT DATE: 20250101
